FAERS Safety Report 6769721-X (Version None)
Quarter: 2010Q2

REPORT INFORMATION
  Report Type: 
  Country: None (occurrence: None)
  Receive Date: 20100615
  Receipt Date: 20100602
  Transmission Date: 20101027
  Serious: Yes (Other)
  Sender: FDA-Public Use
  Company Number: PHHY2010BR35701

PATIENT
  Sex: Female

DRUGS (1)
  1. DIOVAN HCT [Suspect]
     Dosage: 160/25 MG
     Route: 048

REACTIONS (5)
  - BLINDNESS [None]
  - CRYING [None]
  - DEAFNESS [None]
  - MALAISE [None]
  - NERVOUSNESS [None]
